FAERS Safety Report 4888037-X (Version None)
Quarter: 2006Q1

REPORT INFORMATION
  Report Type: 
  Country: None (occurrence: None)
  Receive Date: 20060123
  Receipt Date: 20051021
  Transmission Date: 20060701
  Serious: Yes (Death)
  Sender: FDA-Public Use
  Company Number: US-MERCK-0510USA08850

PATIENT
  Age: 49 Year
  Sex: Female
  Weight: 103 kg

DRUGS (13)
  1. VIOXX [Suspect]
     Indication: ARTHRALGIA
     Route: 048
     Dates: start: 20030301
  2. SKELAXIN [Concomitant]
     Route: 065
  3. CLONIDINE [Concomitant]
     Route: 065
  4. PREMARIN [Concomitant]
     Route: 065
  5. ESTRATEST [Concomitant]
     Route: 065
  6. LIPITOR [Concomitant]
     Route: 065
  7. ALLEGRA [Concomitant]
     Route: 065
  8. AMBIEN [Concomitant]
     Route: 065
  9. ZOLOFT [Concomitant]
     Route: 065
  10. HYDROCODONE BITARTRATE + ACETAMINOPHEN [Concomitant]
     Route: 065
  11. DIOVAN HCT [Concomitant]
     Route: 065
  12. PAXIL CR [Concomitant]
     Route: 065
  13. NEXIUM [Concomitant]
     Route: 065

REACTIONS (6)
  - ARRHYTHMIA [None]
  - ARTHRITIS [None]
  - CARDIOMYOPATHY [None]
  - DRUG INEFFECTIVE [None]
  - INTERVERTEBRAL DISC PROTRUSION [None]
  - MYOCARDIAL INFARCTION [None]
